FAERS Safety Report 10186278 (Version 1)
Quarter: 2014Q2

REPORT INFORMATION
  Report Type: Spontaneous
  Country: PT (occurrence: PT)
  Receive Date: 20140521
  Receipt Date: 20140521
  Transmission Date: 20141212
  Serious: Yes (Hospitalization, Other)
  Sender: FDA-Public Use
  Company Number: PT-B.I. PHARMACEUTICALS,INC./RIDGEFIELD-2014-BI-21918PO

PATIENT
  Age: 84 Year
  Sex: Female

DRUGS (2)
  1. PRADAXA [Suspect]
     Indication: ATRIAL FIBRILLATION
     Route: 065
     Dates: end: 2014
  2. DIURETIC [Concomitant]
     Route: 065

REACTIONS (9)
  - Heart rate abnormal [Recovered/Resolved]
  - Dyspnoea [Unknown]
  - Oedema peripheral [Unknown]
  - Orthopnoea [Unknown]
  - Aortic stenosis [Unknown]
  - Coronary artery disease [Unknown]
  - Coronary artery disease [Unknown]
  - Coronary artery occlusion [Unknown]
  - Cardiac failure [Unknown]
